FAERS Safety Report 7866003-X (Version None)
Quarter: 2011Q4

REPORT INFORMATION
  Report Type: 
  Country: None (occurrence: None)
  Receive Date: 20111028
  Receipt Date: 20110406
  Transmission Date: 20120403
  Serious: No
  Sender: FDA-Public Use
  Company Number: US-GLAXOSMITHKLINE-A0921664A

PATIENT
  Age: 90 Year
  Sex: Female

DRUGS (9)
  1. ALBUTEROL [Concomitant]
  2. LOSARTAN POTASSIUM [Concomitant]
  3. SIMVASTATIN [Concomitant]
  4. ASPIRIN [Concomitant]
  5. ATENOLOL [Concomitant]
  6. POTASSIUM [Concomitant]
  7. PANTOPRAZOLE [Concomitant]
  8. ADVAIR DISKUS 100/50 [Suspect]
     Indication: COUGH
     Dosage: 1PUFF TWICE PER DAY
     Route: 055
     Dates: start: 20110322
  9. NIFEDIPINE [Concomitant]

REACTIONS (3)
  - DYSPNOEA [None]
  - WHEEZING [None]
  - COUGH [None]
